FAERS Safety Report 23654916 (Version 1)
Quarter: 2024Q1

REPORT INFORMATION
  Report Type: Spontaneous
  Country: US (occurrence: US)
  Receive Date: 20240320
  Receipt Date: 20240320
  Transmission Date: 20240410
  Serious: Yes (Other)
  Sender: FDA-Public Use
  Company Number: US-FERRINGPH-2024FE01212

PATIENT

DRUGS (2)
  1. FIRMAGON [Suspect]
     Active Substance: DEGARELIX ACETATE
     Indication: Product used for unknown indication
     Dosage: 80 MG
     Route: 065
     Dates: start: 20240301
  2. FIRMAGON [Suspect]
     Active Substance: DEGARELIX ACETATE
     Dosage: 240 MG, ONCE/SINGLE
     Route: 065
     Dates: start: 20240202, end: 20240202

REACTIONS (8)
  - Syncope [Unknown]
  - Blood pressure decreased [Unknown]
  - Blood sodium decreased [Unknown]
  - Blood magnesium decreased [Unknown]
  - Dehydration [Unknown]
  - Dizziness [Unknown]
  - Injection site erythema [Unknown]
  - Injection site pain [Unknown]

NARRATIVE: CASE EVENT DATE: 20240202
